FAERS Safety Report 6885288-X (Version None)
Quarter: 2010Q3

REPORT INFORMATION
  Report Type: 
  Country: None (occurrence: None)
  Receive Date: 20100729
  Receipt Date: 20100729
  Transmission Date: 20110219
  Serious: Yes (Hospitalization)
  Sender: FDA-Public Use
  Company Number: None

PATIENT
  Sex: Male
  Weight: 84 kg

DRUGS (5)
  1. SUNITINIB [Suspect]
     Indication: RENAL CANCER
     Dosage: 50MG ONCE DAILY
     Dates: start: 20100318, end: 20100630
  2. ATENOLOL [Concomitant]
  3. PRILOSEC [Concomitant]
  4. FLONASE [Concomitant]
  5. PLENDIL [Concomitant]

REACTIONS (1)
  - POSTOPERATIVE RENAL FAILURE [None]
